FAERS Safety Report 5683119-7 (Version None)
Quarter: 2008Q1

REPORT INFORMATION
  Report Type: 
  Country: None (occurrence: None)
  Receive Date: 20080327
  Receipt Date: 20080320
  Transmission Date: 20080703
  Serious: Yes (Hospitalization)
  Sender: FDA-Public Use
  Company Number: US-ELI_LILLY_AND_COMPANY-US200803004978

PATIENT
  Sex: Female

DRUGS (9)
  1. BYETTA [Suspect]
     Dosage: 10 UG, 2/D
     Route: 058
     Dates: start: 20050601
  2. LYRICA [Concomitant]
     Indication: NEUROPATHY PERIPHERAL
  3. DARVOCET /00220901/ [Concomitant]
     Indication: NEUROPATHY PERIPHERAL
  4. VITAMIN B-12 [Concomitant]
     Indication: ENERGY INCREASED
     Dosage: UNK, MONTHLY (1/M)
     Route: 058
  5. CALCIUM [Concomitant]
     Indication: MINERAL SUPPLEMENTATION
  6. ASPIRIN [Concomitant]
     Dosage: 325 MG, DAILY (1/D)
  7. VYTORIN [Concomitant]
     Indication: BLOOD CHOLESTEROL
  8. GLIPIZIDE [Concomitant]
     Indication: DIABETES MELLITUS
  9. FLUOXETINE [Concomitant]
     Indication: NERVOUSNESS

REACTIONS (10)
  - ABDOMINAL PAIN UPPER [None]
  - BLOOD GLUCOSE INCREASED [None]
  - DEHYDRATION [None]
  - DYSPHAGIA [None]
  - DYSPNOEA [None]
  - HEADACHE [None]
  - SINUS CONGESTION [None]
  - SINUSITIS [None]
  - URINARY TRACT INFECTION [None]
  - VOMITING [None]
